FAERS Safety Report 9203064 (Version 3)
Quarter: 2013Q2

REPORT INFORMATION
  Report Type: Spontaneous
  Country: US (occurrence: US)
  Receive Date: 20130402
  Receipt Date: 20130520
  Transmission Date: 20140414
  Serious: Yes (Other)
  Sender: FDA-Public Use
  Company Number: US-009507513-1304USA000522

PATIENT
  Age: 72 Year
  Sex: Male

DRUGS (7)
  1. JANUVIA [Suspect]
     Indication: DIABETES MELLITUS
     Dosage: 100 MG, QD
     Route: 048
     Dates: start: 20111213
  2. ASPIRIN [Concomitant]
     Dosage: 81 MG, QD
  3. AMARYL [Concomitant]
     Dosage: 4 MG, QD
  4. OMEPRAZOLE [Concomitant]
     Dosage: 20 MG, QD
  5. LISINOPRIL [Concomitant]
     Dosage: 20 MG, QD
  6. ZOCOR [Concomitant]
     Dosage: 40 MG, QD
     Route: 048
  7. METOPROLOL TARTRATE [Concomitant]
     Dosage: 100 MG, BID

REACTIONS (1)
  - Pancreatic carcinoma [Not Recovered/Not Resolved]
